FAERS Safety Report 8923391 (Version 1)
Quarter: 2012Q4

REPORT INFORMATION
  Report Type: 
  Country: DE (occurrence: DE)
  Receive Date: 20121123
  Receipt Date: 20121123
  Transmission Date: 20130627
  Serious: Yes (Other)
  Sender: FDA-Public Use
  Company Number: PHHY2012DE105826

PATIENT
  Sex: Female

DRUGS (5)
  1. TASIGNA [Suspect]
     Indication: CHRONIC MYELOID LEUKAEMIA
     Dosage: UNK, Q12H
     Route: 048
     Dates: start: 20121101, end: 20121113
  2. TASIGNA [Suspect]
     Dosage: 1 DF, QD
     Route: 048
  3. ANTIBIOTIC [Concomitant]
  4. HORMONES NOS [Concomitant]
  5. SERENASE [Concomitant]

REACTIONS (6)
  - Inflammation [Not Recovered/Not Resolved]
  - Cardiovascular disorder [Unknown]
  - Muscular weakness [Unknown]
  - Abdominal pain upper [Unknown]
  - Hyperaesthesia [Unknown]
  - Body temperature decreased [Unknown]
